FAERS Safety Report 9010419 (Version 2)
Quarter: 2013Q1

REPORT INFORMATION
  Report Type: Spontaneous
  Country: FR (occurrence: FR)
  Receive Date: 20130109
  Receipt Date: 20130122
  Transmission Date: 20140127
  Serious: Yes (Other)
  Sender: FDA-Public Use
  Company Number: FR-ROCHE-1177716

PATIENT
  Age: 56 Year
  Sex: Female

DRUGS (8)
  1. RIVOTRIL [Suspect]
     Dosage: 72 DROPS IN THE MORNING AND 92 DROPS IN THE EVENNING
     Route: 065
  2. RIVOTRIL [Suspect]
     Dosage: 100 DROPS IN THE MORNING AND 80 DROPS IN THE EVENING
     Route: 065
  3. SKENAN [Concomitant]
     Route: 065
  4. FELDENE [Concomitant]
     Route: 065
  5. DIFFU K [Concomitant]
     Route: 065
  6. LASILIX [Concomitant]
     Route: 065
  7. OGAST [Concomitant]
     Route: 065
  8. RIVOTRIL [Suspect]
     Indication: NEURALGIA
     Dosage: DROPS
     Route: 065

REACTIONS (1)
  - Withdrawal syndrome [Not Recovered/Not Resolved]
